FAERS Safety Report 10485712 (Version 1)
Quarter: 2014Q4

REPORT INFORMATION
  Report Type: Not Available
  Country: US (occurrence: US)
  Receive Date: 20141001
  Receipt Date: 20141001
  Transmission Date: 20150528
  Serious: Yes (Other)
  Sender: FDA-Public Use
  Company Number: US-LUPIN PHARMACEUTICALS INC.-E2B_00002517

PATIENT
  Age: 29 Year
  Sex: Male
  Weight: 118.04 kg

DRUGS (4)
  1. LEVETIRACETAM TABLETS USP 500MG [Suspect]
     Active Substance: LEVETIRACETAM
     Dates: start: 2013
  2. LEVETIRACTAM [Suspect]
     Active Substance: LEVETIRACETAM
     Indication: SEIZURE
     Dates: start: 201310, end: 2013
  3. LEVETIRACETAM TABLETS USP 500MG [Suspect]
     Active Substance: LEVETIRACETAM
     Indication: SEIZURE
     Dates: start: 201310, end: 2013
  4. LEVETIRACTAM [Suspect]
     Active Substance: LEVETIRACETAM
     Dates: start: 2013

REACTIONS (5)
  - Swollen tongue [Recovered/Resolved]
  - Lip swelling [Recovered/Resolved]
  - Pharyngeal oedema [Recovered/Resolved]
  - Product substitution issue [Unknown]
  - Eye swelling [Recovered/Resolved]
